FAERS Safety Report 7737782-7 (Version None)
Quarter: 2011Q3

REPORT INFORMATION
  Report Type: 
  Country: None (occurrence: None)
  Receive Date: 20110908
  Receipt Date: 20110825
  Transmission Date: 20111222
  Serious: Yes (Other)
  Sender: FDA-Public Use
  Company Number: PHHY2011JP76599

PATIENT
  Age: 52 Year
  Sex: Female

DRUGS (2)
  1. PITAVASTATIN CALCIUM [Suspect]
     Dosage: 1 MG, DAILY
     Route: 048
     Dates: start: 20110823, end: 20110823
  2. DIOVAN [Suspect]
     Indication: HYPERTENSION
     Dosage: 80 MG, DAILY
     Route: 048
     Dates: start: 20110823, end: 20110823

REACTIONS (4)
  - VOMITING [None]
  - ALTERED STATE OF CONSCIOUSNESS [None]
  - MALAISE [None]
  - DIZZINESS [None]
